FAERS Safety Report 26086599 (Version 1)
Quarter: 2025Q4

REPORT INFORMATION
  Report Type: Spontaneous
  Country: CA (occurrence: CA)
  Receive Date: 20251125
  Receipt Date: 20251125
  Transmission Date: 20260118
  Serious: Yes (Death, Other)
  Sender: BRISTOL-MYERS SQUIBB COMPANY
  Company Number: CA-BRISTOL-MYERS SQUIBB COMPANY-2025-158499

PATIENT
  Age: 40 Year
  Sex: Female
  Weight: 96 kg

DRUGS (121)
  1. TRIAMCINOLONE ACETONIDE [Suspect]
     Active Substance: TRIAMCINOLONE ACETONIDE
     Indication: Rheumatoid arthritis
     Route: 014
  2. TRIAMCINOLONE ACETONIDE [Suspect]
     Active Substance: TRIAMCINOLONE ACETONIDE
     Route: 014
  3. TRIAMCINOLONE ACETONIDE [Suspect]
     Active Substance: TRIAMCINOLONE ACETONIDE
     Route: 013
  4. TRIAMCINOLONE ACETONIDE [Suspect]
     Active Substance: TRIAMCINOLONE ACETONIDE
  5. ACETAMINOPHEN [Concomitant]
     Active Substance: ACETAMINOPHEN
     Indication: Rheumatoid arthritis
  6. ACETAMINOPHEN [Concomitant]
     Active Substance: ACETAMINOPHEN
  7. ACETAMINOPHEN [Concomitant]
     Active Substance: ACETAMINOPHEN
  8. ACETAMINOPHEN [Concomitant]
     Active Substance: ACETAMINOPHEN
     Route: 058
  9. AIMOVIG [Concomitant]
     Active Substance: ERENUMAB-AOOE
     Indication: Migraine
  10. AIMOVIG [Concomitant]
     Active Substance: ERENUMAB-AOOE
  11. ALENDRONIC ACID [Concomitant]
     Active Substance: ALENDRONIC ACID
     Indication: Rheumatoid arthritis
  12. ALENDRONIC ACID [Concomitant]
     Active Substance: ALENDRONIC ACID
     Route: 048
  13. ALENDRONIC ACID [Concomitant]
     Active Substance: ALENDRONIC ACID
     Route: 016
  14. ALENDRONIC ACID [Concomitant]
     Active Substance: ALENDRONIC ACID
  15. ALENDRONIC ACID [Concomitant]
     Active Substance: ALENDRONIC ACID
     Route: 048
  16. BOTULINUM TOXIN TYPE A [Concomitant]
     Active Substance: BOTULINUM TOXIN TYPE A
     Indication: Product used for unknown indication
  17. BUTRANS [Concomitant]
     Active Substance: BUPRENORPHINE
     Indication: Product used for unknown indication
  18. CALCIUM CARBONATE [Concomitant]
     Active Substance: CALCIUM CARBONATE
     Indication: Product used for unknown indication
  19. CANDESARTAN [Concomitant]
     Active Substance: CANDESARTAN
     Indication: Migraine
     Route: 048
  20. CETIRIZINE [Concomitant]
     Active Substance: CETIRIZINE HYDROCHLORIDE
     Indication: Rheumatoid arthritis
     Route: 048
  21. CETIRIZINE [Concomitant]
     Active Substance: CETIRIZINE HYDROCHLORIDE
     Indication: Off label use
     Route: 048
  22. CETIRIZINE [Concomitant]
     Active Substance: CETIRIZINE HYDROCHLORIDE
  23. CETIRIZINE HYDROCHLORIDE [Concomitant]
     Active Substance: CETIRIZINE HYDROCHLORIDE
     Indication: Rheumatoid arthritis
  24. COD LIVER OIL [Concomitant]
     Active Substance: COD LIVER OIL
     Indication: Product used for unknown indication
  25. COSENTYX [Concomitant]
     Active Substance: SECUKINUMAB
     Indication: Rheumatoid arthritis
  26. COSENTYX [Concomitant]
     Active Substance: SECUKINUMAB
     Indication: Psoriatic arthropathy
  27. COSENTYX [Concomitant]
     Active Substance: SECUKINUMAB
  28. COSENTYX [Concomitant]
     Active Substance: SECUKINUMAB
  29. COSENTYX [Concomitant]
     Active Substance: SECUKINUMAB
     Route: 048
  30. COSENTYX [Concomitant]
     Active Substance: SECUKINUMAB
     Route: 058
  31. DICLOFENAC [Concomitant]
     Active Substance: DICLOFENAC
     Indication: Product used for unknown indication
     Route: 058
  32. DICLOFENAC [Concomitant]
     Active Substance: DICLOFENAC
  33. DICLOFENAC [Concomitant]
     Active Substance: DICLOFENAC
  34. DICLOFENAC DIETHYLAMINE [Concomitant]
     Active Substance: DICLOFENAC DIETHYLAMINE
     Indication: Product used for unknown indication
  35. DICLOFENAC DIETHYLAMINE [Concomitant]
     Active Substance: DICLOFENAC DIETHYLAMINE
     Route: 058
  36. DICLOFENAC SODIUM [Concomitant]
     Active Substance: DICLOFENAC SODIUM
     Indication: Product used for unknown indication
  37. DICLOFENAC SODIUM [Concomitant]
     Active Substance: DICLOFENAC SODIUM
  38. DICLOFENAC SODIUM [Concomitant]
     Active Substance: DICLOFENAC SODIUM
  39. DICLOFENAC SODIUM [Concomitant]
     Active Substance: DICLOFENAC SODIUM
     Route: 058
  40. ERELZI [Concomitant]
     Active Substance: ETANERCEPT-SZZS
     Indication: Rheumatoid arthritis
     Route: 058
  41. ERELZI [Concomitant]
     Active Substance: ETANERCEPT-SZZS
  42. ERELZI [Concomitant]
     Active Substance: ETANERCEPT-SZZS
     Route: 058
  43. ERGOCALCIFEROL [Concomitant]
     Active Substance: ERGOCALCIFEROL
     Indication: Rheumatoid arthritis
  44. ERGOCALCIFEROL [Concomitant]
     Active Substance: ERGOCALCIFEROL
  45. FLUMETHASONE [Concomitant]
     Active Substance: FLUMETHASONE
     Indication: Product used for unknown indication
  46. HYRIMOZ [Concomitant]
     Active Substance: ADALIMUMAB-ADAZ
     Indication: Rheumatoid arthritis
     Route: 058
  47. HYRIMOZ [Concomitant]
     Active Substance: ADALIMUMAB-ADAZ
     Route: 058
  48. HYRIMOZ [Concomitant]
     Active Substance: ADALIMUMAB-ADAZ
     Route: 058
  49. INFLIXIMAB [Concomitant]
     Active Substance: INFLIXIMAB
     Indication: Rheumatoid arthritis
  50. INFLIXIMAB [Concomitant]
     Active Substance: INFLIXIMAB
  51. INFLIXIMAB [Concomitant]
     Active Substance: INFLIXIMAB
  52. INFLIXIMAB [Concomitant]
     Active Substance: INFLIXIMAB
  53. INFLIXIMAB [Concomitant]
     Active Substance: INFLIXIMAB
     Route: 042
  54. INFLIXIMAB [Concomitant]
     Active Substance: INFLIXIMAB
     Route: 042
  55. LEVOMILNACIPRAN [Concomitant]
     Active Substance: LEVOMILNACIPRAN
     Indication: Product used for unknown indication
  56. METHOTREXATE [Concomitant]
     Active Substance: METHOTREXATE
     Indication: Rheumatoid arthritis
     Route: 058
  57. METHOTREXATE [Concomitant]
     Active Substance: METHOTREXATE
     Route: 048
  58. METHOTREXATE [Concomitant]
     Active Substance: METHOTREXATE
     Route: 048
  59. METHOTREXATE [Concomitant]
     Active Substance: METHOTREXATE
     Route: 013
  60. METHOTREXATE [Concomitant]
     Active Substance: METHOTREXATE
     Route: 058
  61. METHOTREXATE [Concomitant]
     Active Substance: METHOTREXATE
  62. METHOTREXATE [Concomitant]
     Active Substance: METHOTREXATE
     Route: 048
  63. METHOTREXATE [Concomitant]
     Active Substance: METHOTREXATE
  64. METHOTREXATE [Concomitant]
     Active Substance: METHOTREXATE
  65. METHOTREXATE [Concomitant]
     Active Substance: METHOTREXATE
     Route: 058
  66. METHOTREXATE [Concomitant]
     Active Substance: METHOTREXATE
     Route: 058
  67. METHOTREXATE [Concomitant]
     Active Substance: METHOTREXATE
     Route: 048
  68. METHOTREXATE [Concomitant]
     Active Substance: METHOTREXATE
  69. METHOTREXATE [Concomitant]
     Active Substance: METHOTREXATE
  70. METHOTREXATE [Concomitant]
     Active Substance: METHOTREXATE
     Route: 016
  71. METHOTREXATE [Concomitant]
     Active Substance: METHOTREXATE
     Route: 013
  72. METHOTREXATE [Concomitant]
     Active Substance: METHOTREXATE
     Route: 048
  73. METHOTREXATE [Concomitant]
     Active Substance: METHOTREXATE
     Route: 058
  74. METHOTREXATE [Concomitant]
     Active Substance: METHOTREXATE
  75. METHOTREXATE [Concomitant]
     Active Substance: METHOTREXATE
     Route: 048
  76. METHOTREXATE [Concomitant]
     Active Substance: METHOTREXATE
     Route: 048
  77. METHOTREXATE [Concomitant]
     Active Substance: METHOTREXATE
     Route: 048
  78. METHOTREXATE [Concomitant]
     Active Substance: METHOTREXATE
     Route: 048
  79. METHOTREXATE [Concomitant]
     Active Substance: METHOTREXATE
     Route: 058
  80. NAPROXEN [Concomitant]
     Active Substance: NAPROXEN
     Indication: Product used for unknown indication
  81. OXYCODONE [Concomitant]
     Active Substance: OXYCODONE
     Indication: Product used for unknown indication
  82. RAMIPRIL [Concomitant]
     Active Substance: RAMIPRIL
     Indication: Rheumatoid arthritis
  83. RAMIPRIL [Concomitant]
     Active Substance: RAMIPRIL
     Indication: Off label use
     Route: 016
  84. RITUXIMAB [Concomitant]
     Active Substance: RITUXIMAB
     Indication: Rheumatoid arthritis
  85. RITUXIMAB [Concomitant]
     Active Substance: RITUXIMAB
  86. RITUXIMAB [Concomitant]
     Active Substance: RITUXIMAB
  87. RITUXIMAB [Concomitant]
     Active Substance: RITUXIMAB
  88. RITUXIMAB [Concomitant]
     Active Substance: RITUXIMAB
     Route: 042
  89. RITUXIMAB [Concomitant]
     Active Substance: RITUXIMAB
     Route: 042
  90. RITUXIMAB [Concomitant]
     Active Substance: RITUXIMAB
  91. RITUXIMAB [Concomitant]
     Active Substance: RITUXIMAB
     Route: 019
  92. RITUXIMAB [Concomitant]
     Active Substance: RITUXIMAB
     Route: 058
  93. RITUXIMAB [Concomitant]
     Active Substance: RITUXIMAB
  94. RITUXIMAB [Concomitant]
     Active Substance: RITUXIMAB
  95. RITUXIMAB [Concomitant]
     Active Substance: RITUXIMAB
  96. RITUXIMAB [Concomitant]
     Active Substance: RITUXIMAB
  97. RITUXIMAB [Concomitant]
     Active Substance: RITUXIMAB
     Route: 042
  98. RITUXIMAB [Concomitant]
     Active Substance: RITUXIMAB
     Route: 016
  99. RITUXIMAB [Concomitant]
     Active Substance: RITUXIMAB
     Route: 040
  100. RITUXIMAB [Concomitant]
     Active Substance: RITUXIMAB
  101. RITUXIMAB [Concomitant]
     Active Substance: RITUXIMAB
     Route: 042
  102. RITUXIMAB [Concomitant]
     Active Substance: RITUXIMAB
     Route: 040
  103. RITUXIMAB [Concomitant]
     Active Substance: RITUXIMAB
     Route: 042
  104. RITUXIMAB [Concomitant]
     Active Substance: RITUXIMAB
     Route: 043
  105. RITUXIMAB [Concomitant]
     Active Substance: RITUXIMAB
  106. RITUXIMAB [Concomitant]
     Active Substance: RITUXIMAB
     Route: 042
  107. RITUXIMAB [Concomitant]
     Active Substance: RITUXIMAB
     Route: 042
  108. RITUXIMAB [Concomitant]
     Active Substance: RITUXIMAB
  109. RITUXIMAB [Concomitant]
     Active Substance: RITUXIMAB
     Route: 042
  110. LEFLUNOMIDE [Concomitant]
     Active Substance: LEFLUNOMIDE
     Indication: Rheumatoid arthritis
  111. LEFLUNOMIDE [Concomitant]
     Active Substance: LEFLUNOMIDE
     Route: 048
  112. LEFLUNOMIDE [Concomitant]
     Active Substance: LEFLUNOMIDE
  113. LEFLUNOMIDE [Concomitant]
     Active Substance: LEFLUNOMIDE
  114. LEFLUNOMIDE [Concomitant]
     Active Substance: LEFLUNOMIDE
     Route: 048
  115. LEFLUNOMIDE [Concomitant]
     Active Substance: LEFLUNOMIDE
     Route: 048
  116. LEFLUNOMIDE [Concomitant]
     Active Substance: LEFLUNOMIDE
  117. LEFLUNOMIDE [Concomitant]
     Active Substance: LEFLUNOMIDE
  118. LEFLUNOMIDE [Concomitant]
     Active Substance: LEFLUNOMIDE
  119. STELARA [Concomitant]
     Active Substance: USTEKINUMAB
     Indication: Rheumatoid arthritis
     Route: 058
  120. TRAMADOL HYDROCHLORIDE [Concomitant]
     Active Substance: TRAMADOL HYDROCHLORIDE
     Indication: Rheumatoid arthritis
  121. VITAMIN D3 [Concomitant]
     Active Substance: CHOLECALCIFEROL

REACTIONS (1)
  - Death [Fatal]
